FAERS Safety Report 9422787 (Version 1)
Quarter: 2013Q3

REPORT INFORMATION
  Report Type: Spontaneous
  Country: FR (occurrence: FR)
  Receive Date: 20130726
  Receipt Date: 20130726
  Transmission Date: 20140515
  Serious: Yes (Hospitalization)
  Sender: FDA-Public Use
  Company Number: FR-JNJFOC-20130713563

PATIENT
  Age: 91 Year
  Sex: Female

DRUGS (5)
  1. XARELTO [Suspect]
     Indication: PRODUCT USED FOR UNKNOWN INDICATION
     Route: 048
     Dates: start: 201303, end: 20130516
  2. CORDARONE [Concomitant]
     Route: 065
  3. HYTACAND [Concomitant]
     Route: 065
  4. TEMERIT [Concomitant]
     Route: 065
  5. LERCAN [Concomitant]
     Route: 065

REACTIONS (1)
  - Arterial thrombosis [Recovered/Resolved]
